FAERS Safety Report 10164241 (Version 2)
Quarter: 2014Q2

REPORT INFORMATION
  Report Type: Spontaneous
  Country: US (occurrence: US)
  Receive Date: 20140510
  Receipt Date: 20140510
  Transmission Date: 20141212
  Serious: No
  Sender: FDA-Public Use
  Company Number: US-BRISTOL-MYERS SQUIBB COMPANY-20036190

PATIENT
  Age: 67 Year
  Sex: Female
  Weight: 86.17 kg

DRUGS (2)
  1. BYETTA [Suspect]
     Indication: TYPE 2 DIABETES MELLITUS
     Route: 058
  2. LANTUS [Concomitant]

REACTIONS (4)
  - Blood glucose decreased [Unknown]
  - Injection site extravasation [Unknown]
  - Dizziness [Unknown]
  - Feeling abnormal [Unknown]
